FAERS Safety Report 5083825-1 (Version None)
Quarter: 2006Q3

REPORT INFORMATION
  Report Type: 
  Country: None (occurrence: None)
  Receive Date: 20060817
  Receipt Date: 20060817
  Transmission Date: 20061208
  Serious: Yes (Life-Threatening)
  Sender: FDA-Public Use
  Company Number: None

PATIENT
  Age: 72 Year
  Sex: Female
  Weight: 68 kg

DRUGS (2)
  1. LIPITOR [Suspect]
     Indication: HYPERCHOLESTEROLAEMIA
  2. COMTAN [Suspect]
     Indication: PARKINSON'S DISEASE
     Dosage: 200MG BID PO
     Route: 048

REACTIONS (1)
  - RHABDOMYOLYSIS [None]
